FAERS Safety Report 7222294-X (Version None)
Quarter: 2011Q1

REPORT INFORMATION
  Report Type: 
  Country: None (occurrence: None)
  Receive Date: 20110103
  Receipt Date: 20101217
  Transmission Date: 20110831
  Serious: Yes (Death, Congenital Anomaly)
  Sender: FDA-Public Use
  Company Number: 1000017945

PATIENT
  Sex: Female

DRUGS (4)
  1. DEPAKOTE(VALPROATE SEMISODIUM) [Suspect]
     Dosage: TRANSPLACENTAL
     Route: 064
     Dates: start: 20100709, end: 20100820
  2. ATENOLOL [Suspect]
     Dosage: TRANSPLACENTAL
     Route: 064
     Dates: end: 20101105
  3. FENOFIBRATE [Suspect]
     Dosage: TRANSPLACENTAL
     Route: 064
     Dates: start: 20100709, end: 20100820
  4. CITALOPRAM HYDROBROMIDE [Suspect]
     Dosage: TRANSPLACENTAL
     Route: 064
     Dates: start: 20100820, end: 20101105

REACTIONS (4)
  - AMNIOTIC FLUID VOLUME DECREASED [None]
  - BLADDER HYPERTROPHY [None]
  - CONGENITAL BLADDER ANOMALY [None]
  - MATERNAL DRUGS AFFECTING FOETUS [None]
